FAERS Safety Report 10048271 (Version 1)
Quarter: 2014Q1

REPORT INFORMATION
  Report Type: Spontaneous
  Country: US (occurrence: US)
  Receive Date: 20140331
  Receipt Date: 20140331
  Transmission Date: 20141002
  Serious: No
  Sender: FDA-Public Use
  Company Number: US-PFIZER INC-2014089239

PATIENT
  Age: 54 Year
  Sex: Female

DRUGS (10)
  1. XELJANZ [Suspect]
     Indication: RHEUMATOID ARTHRITIS
     Dosage: 5 MG, 2X/DAY
     Route: 048
  2. NORVASC [Concomitant]
     Dosage: 5 MG, UNK
  3. PROTONIX [Concomitant]
     Dosage: 40 MG, UNK
  4. ENALAPRIL [Concomitant]
     Dosage: 10 MG, UNK
  5. CALCIUM + VIT D [Concomitant]
     Dosage: UNK
  6. VITAMIN C [Concomitant]
     Dosage: 500 MG, UNK
  7. NASONEX [Concomitant]
     Dosage: 50 MCG/AC
  8. ZYRTEC ALLGY [Concomitant]
     Dosage: 10 MG, UNK
  9. RELAFEN [Concomitant]
     Dosage: 500 MG, UNK
  10. TD MULTIVITAMIN [Concomitant]
     Dosage: UNK

REACTIONS (1)
  - Drug ineffective [Unknown]
